FAERS Safety Report 13820677 (Version 2)
Quarter: 2017Q3

REPORT INFORMATION
  Report Type: Spontaneous
  Country: TW (occurrence: TW)
  Receive Date: 20170801
  Receipt Date: 20170816
  Transmission Date: 20171127
  Serious: Yes (Other)
  Sender: FDA-Public Use
  Company Number: TW-BAYER-2017-140975

PATIENT
  Age: 36 Year
  Sex: Female

DRUGS (1)
  1. MIRENA [Suspect]
     Active Substance: LEVONORGESTREL
     Dosage: 20 MCG/24HR, CONT
     Route: 015
     Dates: start: 20170114, end: 20170728

REACTIONS (4)
  - Back pain [None]
  - Abdominal discomfort [None]
  - Metastases to lymph nodes [None]
  - Breast cancer stage II [None]

NARRATIVE: CASE EVENT DATE: 2017
